FAERS Safety Report 5198044-8 (Version None)
Quarter: 2007Q1

REPORT INFORMATION
  Report Type: 
  Country: None (occurrence: None)
  Receive Date: 20070104
  Receipt Date: 20070102
  Transmission Date: 20070707
  Serious: Yes (Hospitalization)
  Sender: FDA-Public Use
  Company Number: US-JNJFOC-20061000925

PATIENT
  Sex: Female
  Weight: 80.29 kg

DRUGS (3)
  1. REMICADE [Suspect]
     Indication: RHEUMATOID ARTHRITIS
     Dosage: 3 VIALS
     Route: 042
  2. SYNTHROID [Concomitant]
     Indication: HYPOTHYROIDISM
  3. PLAQUENIL [Concomitant]

REACTIONS (2)
  - MIGRAINE [None]
  - NAUSEA [None]
